FAERS Safety Report 19014260 (Version 1)
Quarter: 2021Q1

REPORT INFORMATION
  Report Type: Report from Study
  Country: US (occurrence: US)
  Receive Date: 20210316
  Receipt Date: 20210316
  Transmission Date: 20210420
  Serious: Yes (Hospitalization)
  Sender: FDA-Public Use
  Company Number: US-JNJFOC-20210312918

PATIENT
  Age: 3 Year
  Sex: Male

DRUGS (5)
  1. OMEPRAZOLE. [Concomitant]
     Active Substance: OMEPRAZOLE
  2. TRACLEER [Suspect]
     Active Substance: BOSENTAN
     Indication: VENTRICULAR SEPTAL DEFECT
     Route: 048
     Dates: start: 20190921
  3. ASPIRIN. [Concomitant]
     Active Substance: ASPIRIN
  4. SILDENAFIL. [Concomitant]
     Active Substance: SILDENAFIL
  5. ENALAPRIL [Concomitant]
     Active Substance: ENALAPRIL

REACTIONS (2)
  - Off label use [Unknown]
  - Hospitalisation [Not Recovered/Not Resolved]

NARRATIVE: CASE EVENT DATE: 20210222
